FAERS Safety Report 18617716 (Version 3)
Quarter: 2022Q3

REPORT INFORMATION
  Report Type: Report from Study
  Country: US (occurrence: US)
  Receive Date: 20201215
  Receipt Date: 20220802
  Transmission Date: 20221026
  Serious: Yes (Other)
  Sender: FDA-Public Use
  Company Number: US-TAKEDA-2020TUS055507

PATIENT
  Sex: Female

DRUGS (2)
  1. HUMAN IMMUNOGLOBULIN G [Suspect]
     Active Substance: HUMAN IMMUNOGLOBULIN G
     Indication: Product used for unknown indication
     Dosage: 16 GRAM, 1/WEEK
     Route: 058
     Dates: start: 20220617
  2. TAKHZYRO [Suspect]
     Active Substance: LANADELUMAB-FLYO
     Indication: Product used for unknown indication
     Dosage: 300 MILLIGRAM, Q2WEEKS
     Route: 058
     Dates: start: 20191205

REACTIONS (6)
  - Pneumonia [Unknown]
  - Heart rate increased [Unknown]
  - Blood pressure increased [Unknown]
  - Hereditary angioedema [Not Recovered/Not Resolved]
  - Pain in extremity [Unknown]
  - Therapy interrupted [Recovering/Resolving]
